FAERS Safety Report 14795055 (Version 1)
Quarter: 2018Q2

REPORT INFORMATION
  Report Type: Spontaneous
  Country: KR (occurrence: KR)
  Receive Date: 20180423
  Receipt Date: 20180423
  Transmission Date: 20180711
  Serious: Yes (Other)
  Sender: FDA-Public Use
  Company Number: KR-TEVA-2018-KR-884694

PATIENT
  Age: 22 Month
  Sex: Male

DRUGS (2)
  1. METHYLPREDNISOLONE. [Concomitant]
     Active Substance: METHYLPREDNISOLONE
     Indication: PUSTULAR PSORIASIS
     Dosage: 4 MG/DAY FOR 2 MONTHS
     Route: 065
  2. METHOTREXATE. [Suspect]
     Active Substance: METHOTREXATE
     Indication: PUSTULAR PSORIASIS
     Dosage: 2.5 MG/DAY FOR 2 DAYS/WEEK FOR 2 MONTHS
     Route: 065

REACTIONS (1)
  - Psoriasis [Recovered/Resolved]
